FAERS Safety Report 7567945-5 (Version None)
Quarter: 2011Q2

REPORT INFORMATION
  Report Type: 
  Country: None (occurrence: None)
  Receive Date: 20110623
  Receipt Date: 20110613
  Transmission Date: 20111010
  Serious: Yes (Other)
  Sender: FDA-Public Use
  Company Number: US-BRISTOL-MYERS SQUIBB COMPANY-15154891

PATIENT
  Age: 82 Year
  Sex: Female

DRUGS (4)
  1. PLACEBO [Suspect]
     Indication: THROMBOSIS PROPHYLAXIS
     Route: 048
     Dates: start: 20091124, end: 20100513
  2. WARFARIN SODIUM [Suspect]
     Indication: THROMBOSIS PROPHYLAXIS
     Dosage: 4 MG DAILY.
     Route: 048
     Dates: start: 20091124, end: 20100513
  3. AVAPRO [Concomitant]
     Dates: start: 20100408
  4. CRESTOR [Concomitant]
     Dates: start: 20091118

REACTIONS (1)
  - ATRIAL THROMBOSIS [None]
